FAERS Safety Report 12131455 (Version 2)
Quarter: 2018Q1

REPORT INFORMATION
  Report Type: Report from Study
  Country: US (occurrence: US)
  Receive Date: 20160301
  Receipt Date: 20180125
  Transmission Date: 20180508
  Serious: Yes (Hospitalization)
  Sender: FDA-Public Use
  Company Number: US-JNJFOC-20160204936

PATIENT
  Sex: Female

DRUGS (16)
  1. OXYBUTYNIN. [Suspect]
     Active Substance: OXYBUTYNIN CHLORIDE
     Indication: PRODUCT USED FOR UNKNOWN INDICATION
     Dosage: QUANTITY: 93
     Route: 048
     Dates: start: 20160115, end: 20160210
  2. OXYCONTIN [Suspect]
     Active Substance: OXYCODONE HYDROCHLORIDE
     Indication: PAIN
     Dosage: QUANTITY 60
     Route: 065
     Dates: start: 20160112, end: 20160127
  3. PERPHENAZINE. [Suspect]
     Active Substance: PERPHENAZINE
     Indication: PRODUCT USED FOR UNKNOWN INDICATION
     Dosage: QUANTITY: 186
     Route: 048
     Dates: start: 20160112, end: 20160118
  4. VITAMIN D [Suspect]
     Active Substance: CHOLECALCIFEROL
     Indication: PRODUCT USED FOR UNKNOWN INDICATION
     Dosage: QUANTITY: 62
     Route: 048
     Dates: start: 20160115, end: 20160210
  5. OMEPRAZOLE. [Suspect]
     Active Substance: OMEPRAZOLE
     Indication: PRODUCT USED FOR UNKNOWN INDICATION
     Dosage: QUANTITY:31, EVERY  MORNING
     Route: 048
     Dates: start: 20160115, end: 20160210
  6. MONTELUKAST SODIUM. [Suspect]
     Active Substance: MONTELUKAST SODIUM
     Indication: PRODUCT USED FOR UNKNOWN INDICATION
     Dosage: QUANTITY:31
     Route: 048
     Dates: start: 20160115, end: 20160210
  7. CALCIUM 600 PLUS VITAMIN D [Suspect]
     Active Substance: CALCIUM CARBONATE\VITAMIN D
     Indication: PRODUCT USED FOR UNKNOWN INDICATION
     Dosage: QUANTITY:62
     Route: 048
     Dates: start: 20160115, end: 20160210
  8. TRAZODONE [Suspect]
     Active Substance: TRAZODONE HYDROCHLORIDE
     Indication: PRODUCT USED FOR UNKNOWN INDICATION
     Dosage: QUANTITY:31
     Route: 048
     Dates: start: 20160112, end: 20160118
  9. PRAZOSIN. [Suspect]
     Active Substance: PRAZOSIN
     Indication: PRODUCT USED FOR UNKNOWN INDICATION
     Dosage: QUANTITY:62
     Route: 048
     Dates: start: 20160104, end: 20160210
  10. BENZOTROPINE [Suspect]
     Active Substance: BENZTROPINE
     Indication: PRODUCT USED FOR UNKNOWN INDICATION
     Dosage: QUANTITY:62
     Route: 048
     Dates: start: 20160104, end: 20160210
  11. RISPERDAL CONSTA [Suspect]
     Active Substance: RISPERIDONE
     Indication: PRODUCT USED FOR UNKNOWN INDICATION
     Dosage: QUANTITY: 2
     Route: 030
     Dates: start: 20160104
  12. ALPRAZOLAM. [Suspect]
     Active Substance: ALPRAZOLAM
     Indication: ANXIETY
     Dosage: ONCE IN ONE DAY, QUANTITY: 30
     Route: 048
     Dates: start: 20160112, end: 20160112
  13. GABAPENTIN. [Suspect]
     Active Substance: GABAPENTIN
     Indication: PRODUCT USED FOR UNKNOWN INDICATION
     Dosage: QUANTITY: 93
     Route: 048
     Dates: start: 20160115, end: 20160210
  14. SERTRALINE HYDROCHLORIDE. [Suspect]
     Active Substance: SERTRALINE HYDROCHLORIDE
     Indication: PRODUCT USED FOR UNKNOWN INDICATION
     Dosage: QUANTITY:62
     Route: 048
     Dates: start: 20160104, end: 20160210
  15. LEVETIRACETAM. [Suspect]
     Active Substance: LEVETIRACETAM
     Indication: PRODUCT USED FOR UNKNOWN INDICATION
     Dosage: QUANTITY:62
     Route: 048
     Dates: start: 20160205, end: 20160205
  16. LEVETIRACETAM. [Suspect]
     Active Substance: LEVETIRACETAM
     Indication: PRODUCT USED FOR UNKNOWN INDICATION
     Dosage: QUANTITY: 60
     Route: 048
     Dates: start: 20160215, end: 20160215

REACTIONS (3)
  - Hospitalisation [Unknown]
  - Crying [Unknown]
  - Drug dose omission [Unknown]
